FAERS Safety Report 9101312 (Version 1)
Quarter: 2013Q1

REPORT INFORMATION
  Report Type: Spontaneous
  Country: US (occurrence: US)
  Receive Date: 20130218
  Receipt Date: 20130218
  Transmission Date: 20140127
  Serious: Yes (Death)
  Sender: FDA-Public Use
  Company Number: US-COVIDIEN/TYCO HEALTHCARE/MALLINCKRODT-T201300659

PATIENT
  Age: 41 Year
  Sex: Female

DRUGS (6)
  1. METHYLIN EXTENDED-RELEASE [Suspect]
     Dosage: UNK
     Route: 048
  2. VENLAFAXINE [Suspect]
  3. HYDROXYZINE [Suspect]
  4. BUSPIRONE [Suspect]
  5. TRAZODONE [Suspect]
  6. BUPROPION [Suspect]

REACTIONS (2)
  - Completed suicide [Fatal]
  - Cardio-respiratory arrest [Fatal]
